FAERS Safety Report 7378780-5 (Version None)
Quarter: 2011Q1

REPORT INFORMATION
  Report Type: 
  Country: None (occurrence: None)
  Receive Date: 20110328
  Receipt Date: 20110324
  Transmission Date: 20110831
  Serious: Yes (Death)
  Sender: FDA-Public Use
  Company Number: ES-BRISTOL-MYERS SQUIBB COMPANY-15631856

PATIENT
  Age: 33 Year
  Sex: Male

DRUGS (1)
  1. VUMON [Suspect]

REACTIONS (1)
  - PNEUMONIA [None]
